FAERS Safety Report 9725234 (Version 1)
Quarter: 2013Q4

REPORT INFORMATION
  Report Type: Spontaneous
  Country: US (occurrence: None)
  Receive Date: 20131202
  Receipt Date: 20131202
  Transmission Date: 20140711
  Serious: Yes (Other)
  Sender: FDA-Public Use
  Company Number: None

PATIENT
  Age: 53 Year
  Sex: Male
  Weight: 99.79 kg

DRUGS (1)
  1. LEVAQUIN [Suspect]
     Indication: SURGERY

REACTIONS (15)
  - Drug hypersensitivity [None]
  - Pain [None]
  - Movement disorder [None]
  - Influenza [None]
  - Pain of skin [None]
  - Speech disorder [None]
  - Rash macular [None]
  - Angioedema [None]
  - Swollen tongue [None]
  - Hyperaesthesia [None]
  - Tendon disorder [None]
  - Tendon pain [None]
  - Neuropathy peripheral [None]
  - Pruritus [None]
  - Local swelling [None]
